FAERS Safety Report 9708221 (Version 2)
Quarter: 2014Q1

REPORT INFORMATION
  Report Type: Spontaneous
  Country: US (occurrence: US)
  Receive Date: 20131125
  Receipt Date: 20140129
  Transmission Date: 20141002
  Serious: Yes (Other)
  Sender: FDA-Public Use
  Company Number: US-GLAXOSMITHKLINE-A1050972A

PATIENT
  Age: 80 Year
  Sex: Female

DRUGS (1)
  1. ALLI [Suspect]
     Indication: WEIGHT DECREASED
     Route: 065
     Dates: end: 20131120

REACTIONS (1)
  - Diverticulitis [Recovered/Resolved]
